FAERS Safety Report 8563527-7 (Version None)
Quarter: 2012Q3

REPORT INFORMATION
  Report Type: 
  Country: None (occurrence: None)
  Receive Date: 20120802
  Receipt Date: 20120801
  Transmission Date: 20120928
  Serious: Yes (Other)
  Sender: FDA-Public Use
  Company Number: FR-AMGEN-FRASP2012047910

PATIENT
  Age: 39 Year
  Sex: Female

DRUGS (8)
  1. NEUPOGEN [Suspect]
     Indication: PROPHYLAXIS
     Dosage: UNK
     Route: 042
     Dates: start: 20111215, end: 20111219
  2. DOCETAXEL [Concomitant]
     Indication: BREAST CANCER
     Dosage: 171 MG, UNK
     Route: 042
     Dates: start: 20111212, end: 20111219
  3. EPIRUBICIN [Concomitant]
     Dosage: 100 MG/M2, UNK
  4. ONDANSETRON [Concomitant]
  5. CYCLOPHOSPHAMIDE [Concomitant]
     Dosage: 600 MG/M2, UNK
  6. METHYLPREDNISOLONE [Concomitant]
  7. METOCLOPRAMIDE [Concomitant]
  8. PANTOPRAZOLE SODIUM [Concomitant]
     Dosage: UNK UNK, BID

REACTIONS (4)
  - PYREXIA [None]
  - INFLAMMATION [None]
  - GENERAL PHYSICAL HEALTH DETERIORATION [None]
  - ARTHRALGIA [None]
